FAERS Safety Report 17197985 (Version 3)
Quarter: 2020Q1

REPORT INFORMATION
  Report Type: Spontaneous
  Country: RO (occurrence: RO)
  Receive Date: 20191225
  Receipt Date: 20200313
  Transmission Date: 20200409
  Serious: Yes (Death, Hospitalization)
  Sender: FDA-Public Use
  Company Number: RO-ABBVIE-19K-135-3207174-00

PATIENT
  Age: 39 Year
  Sex: Female
  Weight: 45 kg

DRUGS (4)
  1. GEMCITABINE. [Concomitant]
     Active Substance: GEMCITABINE
     Indication: PRODUCT USED FOR UNKNOWN INDICATION
  2. VINORELBINE [Concomitant]
     Active Substance: VINORELBINE TARTRATE
     Indication: PRODUCT USED FOR UNKNOWN INDICATION
  3. VENETOCLAX. [Suspect]
     Active Substance: VENETOCLAX
     Indication: DIFFUSE LARGE B-CELL LYMPHOMA STAGE IV
     Route: 048
     Dates: start: 20191219, end: 20191219
  4. ECALTA [Concomitant]
     Active Substance: ANIDULAFUNGIN
     Indication: RESPIRATORY TRACT INFECTION
     Route: 042
     Dates: start: 20191218, end: 201912

REACTIONS (3)
  - Spinal pain [Fatal]
  - Cardio-respiratory arrest [Fatal]
  - Respiratory tract infection [Fatal]

NARRATIVE: CASE EVENT DATE: 201912
